FAERS Safety Report 5486889-6 (Version None)
Quarter: 2007Q4

REPORT INFORMATION
  Report Type: 
  Country: None (occurrence: None)
  Receive Date: 20071012
  Receipt Date: 20071012
  Transmission Date: 20080405
  Serious: Yes (Hospitalization)
  Sender: FDA-Public Use
  Company Number: None

PATIENT
  Sex: Male
  Weight: 106 kg

DRUGS (2)
  1. TAXOTERE [Suspect]
     Dosage: 165 MG
  2. PREDNISONE [Suspect]
     Dosage: 90 MG

REACTIONS (4)
  - FALL [None]
  - FATIGUE [None]
  - NEUTROPENIC SEPSIS [None]
  - RENAL FAILURE [None]
